FAERS Safety Report 9149777 (Version 1)
Quarter: 2013Q1

REPORT INFORMATION
  Report Type: Spontaneous
  Country: US (occurrence: None)
  Receive Date: 20130228
  Receipt Date: 20130228
  Transmission Date: 20140127
  Serious: Yes (Other)
  Sender: FDA-Public Use
  Company Number: None

PATIENT
  Age: 48 Year
  Sex: Female
  Weight: 70.31 kg

DRUGS (2)
  1. LUPRON DEPOT [Suspect]
     Indication: UTERINE LEIOMYOMA
     Dates: start: 20120625
  2. LUPRON DEPOT [Suspect]
     Indication: NEOPLASM
     Dates: start: 20120625

REACTIONS (6)
  - Neoplasm [None]
  - Uterine leiomyoma [None]
  - Dysuria [None]
  - Constipation [None]
  - Proctalgia [None]
  - Eye disorder [None]
